FAERS Safety Report 14538632 (Version 2)
Quarter: 2018Q3

REPORT INFORMATION
  Report Type: Other
  Country: GR (occurrence: GR)
  Receive Date: 20180216
  Receipt Date: 20180724
  Transmission Date: 20181010
  Serious: Yes (Hospitalization, Other)
  Sender: FDA-Public Use
  Company Number: GR-MACLEODS PHARMACEUTICALS US LTD-MAC2018009809

PATIENT

DRUGS (1)
  1. OLMESARTAN TABLET [Suspect]
     Active Substance: OLMESARTAN
     Indication: HYPERTENSION
     Dosage: UNK, QD, FILM?COATED TABLET
     Route: 048

REACTIONS (6)
  - Thrombocytopenia [Recovering/Resolving]
  - Headache [Recovered/Resolved]
  - Dizziness [Recovered/Resolved]
  - Haemorrhage intracranial [Recovered/Resolved]
  - Myelodysplastic syndrome [Recovered/Resolved]
  - Condition aggravated [Recovered/Resolved]
